FAERS Safety Report 5159984-9 (Version None)
Quarter: 2006Q4

REPORT INFORMATION
  Report Type: 
  Country: None (occurrence: None)
  Receive Date: 20061129
  Receipt Date: 20060516
  Transmission Date: 20070319
  Serious: No
  Sender: FDA-Public Use
  Company Number: US-GLAXOSMITHKLINE-A0605794A

PATIENT
  Age: 14 Year
  Sex: Male

DRUGS (4)
  1. WELLBUTRIN SR [Suspect]
     Indication: DRUG USE FOR UNKNOWN INDICATION
     Dosage: 150MG PER DAY
     Route: 048
     Dates: start: 20060103
  2. LEXAPRO [Concomitant]
  3. TRAZODONE HCL [Concomitant]
  4. ATARAX [Concomitant]

REACTIONS (2)
  - DRUG ADMINISTRATION ERROR [None]
  - STOMACH DISCOMFORT [None]
